FAERS Safety Report 7711181-6 (Version None)
Quarter: 2011Q3

REPORT INFORMATION
  Report Type: 
  Country: None (occurrence: None)
  Receive Date: 20110826
  Receipt Date: 20110817
  Transmission Date: 20111222
  Serious: Yes (Hospitalization)
  Sender: FDA-Public Use
  Company Number: US-BIOGENIDEC-2011BI031811

PATIENT
  Age: 45 Year
  Sex: Male

DRUGS (3)
  1. TYSABRI [Suspect]
     Indication: MULTIPLE SCLEROSIS
     Route: 042
     Dates: start: 20100924
  2. TYSABRI [Suspect]
     Route: 042
     Dates: start: 20090805, end: 20090921
  3. TYSABRI [Suspect]
     Route: 042
     Dates: start: 20060929, end: 20081003

REACTIONS (1)
  - MULTIPLE SCLEROSIS RELAPSE [None]
